FAERS Safety Report 23039844 (Version 1)
Quarter: 2023Q4

REPORT INFORMATION
  Report Type: Spontaneous
  Country: CH (occurrence: CH)
  Receive Date: 20231006
  Receipt Date: 20231006
  Transmission Date: 20240109
  Serious: Yes (Hospitalization, Other)
  Sender: FDA-Public Use
  Company Number: None

PATIENT
  Age: 81 Year
  Sex: Female
  Weight: 47 kg

DRUGS (25)
  1. FRAGMIN [Suspect]
     Active Substance: DALTEPARIN SODIUM
     Indication: Thrombosis prophylaxis
     Dosage: 5000 IU, 1X/DAY
     Route: 058
     Dates: start: 20230816, end: 20230823
  2. HEPARIN [Suspect]
     Active Substance: HEPARIN SODIUM
     Indication: Thrombosis prophylaxis
     Dosage: 5000 IU IN TOTAL
     Route: 040
     Dates: start: 20230824, end: 20230824
  3. HEPARIN SODIUM [Suspect]
     Active Substance: HEPARIN SODIUM
     Indication: Thrombosis prophylaxis
     Dosage: 5000 IU, 1X/DAY
     Route: 041
     Dates: start: 20230811, end: 20230813
  4. HEPARIN SODIUM [Suspect]
     Active Substance: HEPARIN SODIUM
     Dosage: 10000 IU, 1X/DAY
     Route: 041
     Dates: start: 20230814, end: 20230816
  5. HEPARIN SODIUM [Suspect]
     Active Substance: HEPARIN SODIUM
     Dosage: 1000 IU, CYCLIC (FOR 9H)
     Route: 041
     Dates: start: 20230824, end: 20230824
  6. HEPARIN SODIUM [Suspect]
     Active Substance: HEPARIN SODIUM
     Dosage: 2000 IU IN TOTAL
     Dates: start: 20230825, end: 20230825
  7. ACETAMINOPHEN [Concomitant]
     Active Substance: ACETAMINOPHEN
     Dosage: 1 G, 4X/DAY
     Route: 040
     Dates: start: 20230811, end: 20230813
  8. ACETAMINOPHEN [Concomitant]
     Active Substance: ACETAMINOPHEN
     Dosage: 1 G, 4X/DAY
     Route: 040
     Dates: start: 20230815, end: 20230818
  9. DAFALGAN [Concomitant]
     Active Substance: ACETAMINOPHEN
     Dosage: 500 MG
     Route: 048
     Dates: start: 20230818
  10. DAFALGAN [Concomitant]
     Active Substance: ACETAMINOPHEN
     Dosage: 500 MG, 4X/DAY
     Route: 048
     Dates: start: 20230826, end: 20230904
  11. GASTROGRAFIN [Concomitant]
     Active Substance: DIATRIZOATE MEGLUMINE\DIATRIZOATE SODIUM
     Dosage: DOSE MG/MLROUTE OF ADMINISTRATION: ENTERAL (370) ; IN TOTAL
     Dates: start: 20230815, end: 20230815
  12. METAMIZOLE [Concomitant]
     Active Substance: METAMIZOLE
     Dosage: 1000 MG, 4X/DAY
     Route: 048
     Dates: start: 20230729
  13. METAMIZOLE [Concomitant]
     Active Substance: METAMIZOLE
     Dosage: 500 MG, 4X/DAY
     Route: 048
     Dates: start: 20230818, end: 20230818
  14. METAMIZOLE [Concomitant]
     Active Substance: METAMIZOLE
     Dosage: 500 MG, 3X/DAY
     Route: 048
     Dates: start: 20230819, end: 20230819
  15. METAMIZOLE [Concomitant]
     Active Substance: METAMIZOLE
     Dosage: 500 MG, 2X/DAY
     Route: 048
     Dates: start: 20230821, end: 20230821
  16. PANTOZOL [Concomitant]
     Active Substance: PANTOPRAZOLE SODIUM
     Dosage: 40 MG, 1X/DAY
     Route: 048
     Dates: start: 20230818, end: 20230824
  17. PANTOZOL [Concomitant]
     Active Substance: PANTOPRAZOLE SODIUM
     Dosage: 40 MG, 1X/DAY
     Route: 048
     Dates: start: 20230826, end: 20230905
  18. PANTOPRAZOLE SODIUM [Concomitant]
     Active Substance: PANTOPRAZOLE SODIUM
     Dosage: 40 MG, 1X/DAY
     Route: 040
     Dates: start: 20230812, end: 20230813
  19. PANTOPRAZOLE SODIUM [Concomitant]
     Active Substance: PANTOPRAZOLE SODIUM
     Dosage: 40 MG, 1X/DAY
     Route: 040
     Dates: start: 20230815, end: 20230817
  20. NALOXONE HYDROCHLORIDE\OXYCODONE HYDROCHLORIDE [Concomitant]
     Active Substance: NALOXONE HYDROCHLORIDE\OXYCODONE HYDROCHLORIDE
     Dosage: IN TOTAL
     Route: 048
     Dates: start: 20230822, end: 20230822
  21. OXYCODONE HYDROCHLORIDE [Concomitant]
     Active Substance: OXYCODONE HYDROCHLORIDE
     Dosage: 5 MG, 4X/DAY
     Route: 048
     Dates: start: 20230821, end: 20230821
  22. METAMIZOLE [Concomitant]
     Active Substance: METAMIZOLE
     Dosage: 1 G, 4X/DAY
     Route: 040
     Dates: start: 20230814, end: 20230818
  23. PIPERACILLIN SODIUM\TAZOBACTAM SODIUM [Concomitant]
     Active Substance: PIPERACILLIN SODIUM\TAZOBACTAM SODIUM
     Dosage: 4.5 G, 3X/DAY
     Route: 041
     Dates: start: 20230814, end: 20230819
  24. PASPERTIN K [METOCLOPRAMIDE] [Concomitant]
     Dosage: IN TOTAL
     Route: 040
     Dates: start: 20230812, end: 20230812
  25. ONDANSETRON TEVA [ONDANSETRON] [Concomitant]
     Dosage: IN TOTAL
     Route: 048
     Dates: start: 20230812, end: 20230812

REACTIONS (6)
  - Heparin-induced thrombocytopenia [Recovered/Resolved]
  - Sepsis [Unknown]
  - Nodule [Unknown]
  - Metastasis [Unknown]
  - Atrial flutter [Unknown]
  - Malnutrition [Unknown]

NARRATIVE: CASE EVENT DATE: 20230813
